FAERS Safety Report 21050034 (Version 3)
Quarter: 2022Q3

REPORT INFORMATION
  Report Type: Spontaneous
  Country: IL (occurrence: IL)
  Receive Date: 20220706
  Receipt Date: 20220728
  Transmission Date: 20221027
  Serious: Yes (Hospitalization, Other)
  Sender: FDA-Public Use
  Company Number: IL-MALLINCKRODT-T202203501

PATIENT
  Age: 8 Day
  Sex: Female
  Weight: 1 kg

DRUGS (1)
  1. OFIRMEV [Suspect]
     Active Substance: ACETAMINOPHEN
     Indication: Patent ductus arteriosus
     Dosage: 60 MILLIGRAM/KILOGRAM, QD
     Route: 042

REACTIONS (2)
  - Haemolysis neonatal [Recovered/Resolved]
  - Intentional product use issue [Unknown]
